FAERS Safety Report 19728333 (Version 1)
Quarter: 2021Q3

REPORT INFORMATION
  Report Type: Spontaneous
  Country: US (occurrence: US)
  Receive Date: 20210820
  Receipt Date: 20210820
  Transmission Date: 20211014
  Serious: No
  Sender: FDA-Public Use
  Company Number: US-GLAXOSMITHKLINE-US2021173879

PATIENT
  Sex: Female

DRUGS (1)
  1. FLONASE ALLERGY RELIEF [Suspect]
     Active Substance: FLUTICASONE PROPIONATE
     Indication: PARANASAL SINUS DISCOMFORT
     Dosage: UNK, 72CT

REACTIONS (2)
  - Product use in unapproved indication [Unknown]
  - Drug effective for unapproved indication [Unknown]
